FAERS Safety Report 8325609-4 (Version None)
Quarter: 2012Q2

REPORT INFORMATION
  Report Type: 
  Country: None (occurrence: None)
  Receive Date: 20120501
  Receipt Date: 20100513
  Transmission Date: 20120825
  Serious: No
  Sender: FDA-Public Use
  Company Number: US-TEVA-2010002735

PATIENT
  Sex: Female
  Weight: 59.02 kg

DRUGS (2)
  1. NUVIGIL [Suspect]
     Route: 048
  2. NUVIGIL [Suspect]
     Indication: FATIGUE
     Route: 048

REACTIONS (3)
  - INTENTIONAL DRUG MISUSE [None]
  - MOOD ALTERED [None]
  - DRUG EFFECT INCREASED [None]
